FAERS Safety Report 12467136 (Version 1)
Quarter: 2016Q2

REPORT INFORMATION
  Report Type: Spontaneous
  Country: IT (occurrence: IT)
  Receive Date: 20160615
  Receipt Date: 20160615
  Transmission Date: 20160815
  Serious: Yes (Other)
  Sender: FDA-Public Use
  Company Number: IT-WATSON-2016-12244

PATIENT
  Sex: Male

DRUGS (9)
  1. ETOPOSIDE (UNKNOWN) [Suspect]
     Active Substance: ETOPOSIDE
     Dosage: 50 MG/KG, UNK
     Route: 065
  2. ETOPOSIDE (UNKNOWN) [Suspect]
     Active Substance: ETOPOSIDE
     Indication: GLIOBLASTOMA MULTIFORME
     Dosage: 80 MG/KG, UNK
     Route: 065
  3. MELPHALAN [Suspect]
     Active Substance: MELPHALAN
     Indication: GLIOBLASTOMA MULTIFORME
     Dosage: 4 MG/KG, DAILY
     Route: 065
  4. METHOTREXATE (METHOTREXATE SODIUM) [Suspect]
     Active Substance: METHOTREXATE SODIUM
     Indication: GLIOBLASTOMA MULTIFORME
     Dosage: 250 MG/KG, UNK
     Route: 065
  5. VINCRISTINE (UNKNOWN) [Suspect]
     Active Substance: VINCRISTINE
     Indication: GLIOBLASTOMA MULTIFORME
     Dosage: 0.04 MG/KG, UNK
     Route: 065
  6. CARBOPLATIN (UNKNOWN) [Suspect]
     Active Substance: CARBOPLATIN
     Dosage: 50 MG/KG, UNK
     Route: 065
  7. CYCLOPHOSPHAMIDE. [Suspect]
     Active Substance: CYCLOPHOSPHAMIDE
     Indication: GLIOBLASTOMA MULTIFORME
     Dosage: 135 MG/KG, UNK
     Route: 065
  8. THIOTEPA. [Suspect]
     Active Substance: THIOTEPA
     Indication: GLIOBLASTOMA MULTIFORME
     Dosage: 10 MG/KG, DAILY
     Route: 065
  9. CARBOPLATIN (UNKNOWN) [Suspect]
     Active Substance: CARBOPLATIN
     Indication: GLIOBLASTOMA MULTIFORME
     Dosage: 25 MG/KG, UNK
     Route: 065

REACTIONS (4)
  - Juvenile melanoma benign [Unknown]
  - Transaminases increased [Unknown]
  - Anaemia [Unknown]
  - Thrombocytopenia [Unknown]
